FAERS Safety Report 11539251 (Version 1)
Quarter: 2015Q3

REPORT INFORMATION
  Report Type: Spontaneous
  Country: US (occurrence: US)
  Receive Date: 20150923
  Receipt Date: 20150923
  Transmission Date: 20151125
  Serious: No
  Sender: FDA-Public Use
  Company Number: US-PFIZER INC-2015305689

PATIENT
  Sex: Male

DRUGS (2)
  1. ADVIL PM [Suspect]
     Active Substance: DIPHENHYDRAMINE CITRATE\IBUPROFEN
     Dosage: UNK, ABOUT 2 TO 3 NIGHTS A WEEK
     Dates: start: 2012
  2. VITAMIN D [Concomitant]
     Active Substance: CHOLECALCIFEROL
     Indication: INSOMNIA
     Dosage: UNK

REACTIONS (2)
  - Insomnia [Unknown]
  - Product use issue [Unknown]

NARRATIVE: CASE EVENT DATE: 2012
